FAERS Safety Report 7045004-8 (Version None)
Quarter: 2010Q4

REPORT INFORMATION
  Report Type: 
  Country: None (occurrence: None)
  Receive Date: 20101014
  Receipt Date: 20101006
  Transmission Date: 20110411
  Serious: Yes (Hospitalization)
  Sender: FDA-Public Use
  Company Number: JP-BAYER-200915169BYL

PATIENT
  Age: 86 Year
  Sex: Male
  Weight: 67 kg

DRUGS (5)
  1. NEXAVAR [Suspect]
     Indication: HEPATIC NEOPLASM MALIGNANT
     Dosage: UNIT DOSE: 200 MG
     Route: 048
     Dates: start: 20090924, end: 20091110
  2. NEXAVAR [Suspect]
     Dosage: UNIT DOSE: 200 MG
     Route: 048
     Dates: start: 20091212
  3. SULPIRIDE [Suspect]
     Indication: DECREASED APPETITE
     Route: 048
     Dates: start: 20090919, end: 20091106
  4. TAKEPRON [Suspect]
     Indication: PROPHYLAXIS AGAINST GASTROINTESTINAL ULCER
     Dosage: UNIT DOSE: 15 MG
     Route: 048
     Dates: end: 20091106
  5. LOXONIN [Concomitant]
     Indication: ABDOMINAL PAIN
     Dosage: UNIT DOSE: 60 MG
     Route: 048

REACTIONS (1)
  - HEPATIC FUNCTION ABNORMAL [None]
